FAERS Safety Report 12964097 (Version 1)
Quarter: 2016Q4

REPORT INFORMATION
  Report Type: Spontaneous
  Country: ME (occurrence: ME)
  Receive Date: 20161122
  Receipt Date: 20161122
  Transmission Date: 20170207
  Serious: Yes (Hospitalization, Other)
  Sender: FDA-Public Use
  Company Number: ME-SA-2016SA204189

PATIENT
  Age: 77 Year
  Sex: Female

DRUGS (3)
  1. CLOPIDOGREL BISULFATE. [Suspect]
     Active Substance: CLOPIDOGREL BISULFATE
     Route: 065
  2. SIMVASTATIN. [Suspect]
     Active Substance: SIMVASTATIN
     Route: 065
  3. ASPIRIN. [Concomitant]
     Active Substance: ASPIRIN

REACTIONS (13)
  - Bilirubin conjugated increased [Recovered/Resolved]
  - Hepatotoxicity [Recovered/Resolved]
  - Rash [Recovering/Resolving]
  - Alanine aminotransferase increased [Recovered/Resolved]
  - Acute hepatic failure [Recovering/Resolving]
  - Drug interaction [Unknown]
  - Jaundice [Recovering/Resolving]
  - Pruritus generalised [Recovering/Resolving]
  - Gamma-glutamyltransferase increased [Recovered/Resolved]
  - Liver injury [Recovering/Resolving]
  - Aspartate aminotransferase increased [Recovered/Resolved]
  - Blood alkaline phosphatase increased [Recovered/Resolved]
  - Blood bilirubin increased [Recovered/Resolved]
